FAERS Safety Report 6846070-2 (Version None)
Quarter: 2010Q3

REPORT INFORMATION
  Report Type: 
  Country: None (occurrence: None)
  Receive Date: 20100715
  Receipt Date: 20071010
  Transmission Date: 20110219
  Serious: No
  Sender: FDA-Public Use
  Company Number: US-PFIZER INC-2007073432

PATIENT
  Sex: Female

DRUGS (3)
  1. CHANTIX [Suspect]
  2. LAMICTAL [Concomitant]
     Indication: BIPOLAR DISORDER
  3. SEROQUEL [Concomitant]
     Indication: BIPOLAR DISORDER

REACTIONS (1)
  - IRRITABILITY [None]
